FAERS Safety Report 7071530-1 (Version None)
Quarter: 2010Q4

REPORT INFORMATION
  Report Type: 
  Country: None (occurrence: None)
  Receive Date: 20101029
  Receipt Date: 20090917
  Transmission Date: 20110411
  Serious: No
  Sender: FDA-Public Use
  Company Number: A0807872A

PATIENT
  Age: 68 Year
  Sex: Female

DRUGS (7)
  1. ADVAIR DISKUS 100/50 [Suspect]
     Indication: CHRONIC OBSTRUCTIVE PULMONARY DISEASE
     Dosage: 1PUFF TWICE PER DAY
     Route: 055
  2. THYROID MEDICATION [Concomitant]
  3. RED YEAST RICE [Concomitant]
  4. MUSCLE RELAXER [Concomitant]
  5. ATIVAN [Concomitant]
  6. OMEPRAZOLE [Concomitant]
  7. ARMOUR [Concomitant]

REACTIONS (1)
  - UPPER RESPIRATORY TRACT INFECTION [None]
